FAERS Safety Report 24701432 (Version 1)
Quarter: 2024Q4

REPORT INFORMATION
  Report Type: Spontaneous
  Country: MX (occurrence: MX)
  Receive Date: 20241205
  Receipt Date: 20241205
  Transmission Date: 20250114
  Serious: Yes (Other)
  Sender: NOVO NORDISK
  Company Number: MX-NOVOPROD-1326301

PATIENT
  Age: 27 Year
  Sex: Male
  Weight: 57 kg

DRUGS (3)
  1. NOVOEIGHT [Suspect]
     Active Substance: ANTIHEMOPHILIC FACTOR, HUMAN RECOMBINANT
     Indication: Factor VIII deficiency
     Dosage: 1,500.00 IU(DOSE FREQUENCY: EVERY THIRD DAY)
     Route: 042
     Dates: start: 2022
  2. NOVOEIGHT [Suspect]
     Active Substance: ANTIHEMOPHILIC FACTOR, HUMAN RECOMBINANT
     Dosage: INCREASE THE DOSE TO 2800 IU EVERY THIRD DAY
     Route: 042
     Dates: start: 2022
  3. ACETAMINOPHEN [Concomitant]
     Active Substance: ACETAMINOPHEN
     Indication: Arthralgia
     Dosage: 500 MG (DOSE FREQUENCY: ONLY WHEN THERE IS PAIN)
     Route: 048

REACTIONS (4)
  - Immobile [Not Recovered/Not Resolved]
  - Contusion [Recovered/Resolved]
  - Anti factor VIII antibody positive [Not Recovered/Not Resolved]
  - Haematoma [Not Recovered/Not Resolved]

NARRATIVE: CASE EVENT DATE: 20240101
